FAERS Safety Report 4823832-4 (Version None)
Quarter: 2005Q4

REPORT INFORMATION
  Report Type: 
  Country: None (occurrence: None)
  Receive Date: 20051107
  Receipt Date: 20051021
  Transmission Date: 20060501
  Serious: Yes (Life-Threatening, Hospitalization)
  Sender: FDA-Public Use
  Company Number: WAES 0510USA08332

PATIENT
  Age: 72 Year
  Sex: Female

DRUGS (13)
  1. FOSAMAX [Suspect]
     Indication: OSTEOPOROSIS POSTMENOPAUSAL
     Dosage: 70 MG/WKY/PO
     Route: 048
     Dates: start: 20030204
  2. BENAZEPRIL HYDROCHLORIDE [Concomitant]
  3. CELECOXIB [Concomitant]
  4. CETIRIZINE HYDROCHLORIDE [Concomitant]
  5. GASTROINTESTINAL PREPARATIONS [Concomitant]
  6. HYDROCHLOROTHIAZIDE [Concomitant]
  7. IBUPROFEN [Concomitant]
  8. IRON [Concomitant]
  9. OMEGA-3 MARINE TRIGLYCERIDES [Concomitant]
  10. RABEPRAZOLE SODIUM [Concomitant]
  11. SPIRONOLACTONE [Concomitant]
  12. TOLTERODINE TARTRATE [Concomitant]
  13. VITAMIN E [Concomitant]

REACTIONS (3)
  - ANAEMIA [None]
  - MALIGNANT NEOPLASM PROGRESSION [None]
  - NON-HODGKIN'S LYMPHOMA [None]
